FAERS Safety Report 7551647-5 (Version None)
Quarter: 2011Q2

REPORT INFORMATION
  Report Type: 
  Country: None (occurrence: None)
  Receive Date: 20110609
  Receipt Date: 20110524
  Transmission Date: 20111010
  Serious: Yes (Hospitalization, Other)
  Sender: FDA-Public Use
  Company Number: 2011MA006385

PATIENT
  Age: 71 Year
  Sex: Male

DRUGS (7)
  1. AMIKACIN [Concomitant]
  2. FEVERALL [Suspect]
     Indication: PYREXIA
     Dosage: IV
     Route: 042
  3. SUFENTANIL CITRATE [Concomitant]
  4. MIDAZOLAM HCL [Concomitant]
  5. PIPERACILLIN [Concomitant]
  6. TAZOBACTAM [Concomitant]
  7. EMPIRICAL [Concomitant]

REACTIONS (1)
  - HYPOTENSION [None]
